FAERS Safety Report 15384537 (Version 1)
Quarter: 2018Q3

REPORT INFORMATION
  Report Type: Spontaneous
  Country: US (occurrence: US)
  Receive Date: 20180914
  Receipt Date: 20180914
  Transmission Date: 20181010
  Serious: No
  Sender: FDA-Public Use
  Company Number: US-009507513-1512USA006615

PATIENT
  Age: 23 Year
  Sex: Female

DRUGS (3)
  1. LAMIVUDINE AND ZIDOVUDINE [Suspect]
     Active Substance: LAMIVUDINE\ZIDOVUDINE
     Dosage: 2 (UNIT UNKNOWN) DAILY
     Route: 048
  2. ISENTRESS [Suspect]
     Active Substance: RALTEGRAVIR POTASSIUM
     Dosage: TOTAL DAILY DOSE 800 (UNITS NOT REPORTED), SINCE 37 WEEKS OF GESTATION
     Route: 048
  3. LOPINAVIR (+) RITONAVIR [Suspect]
     Active Substance: LOPINAVIR\RITONAVIR
     Dosage: 2 (UNIT UNKNOWN) DAILY
     Route: 048

REACTIONS (2)
  - No adverse event [Unknown]
  - Maternal exposure during pregnancy [Recovered/Resolved]
